FAERS Safety Report 21265379 (Version 1)
Quarter: 2022Q3

REPORT INFORMATION
  Report Type: Spontaneous
  Country: US (occurrence: None)
  Receive Date: 20220826
  Receipt Date: 20220826
  Transmission Date: 20221027
  Serious: Yes (Life-Threatening, Disabling, Other)
  Sender: FDA-Public Use
  Company Number: None

PATIENT
  Age: 19 Year
  Sex: Female
  Weight: 90 kg

DRUGS (7)
  1. ZOLOFT [Suspect]
     Active Substance: SERTRALINE HYDROCHLORIDE
     Indication: Anxiety
     Route: 048
  2. HYDROXYZINE [Concomitant]
     Active Substance: HYDROXYZINE HYDROCHLORIDE
  3. BUSPIRONE [Concomitant]
     Active Substance: BUSPIRONE HYDROCHLORIDE
  4. WELLBUTRIN [Concomitant]
     Active Substance: BUPROPION HYDROCHLORIDE
  5. LOW-OGESTREL [Concomitant]
     Active Substance: ETHINYL ESTRADIOL\NORGESTREL
  6. blood pressure cuff [Concomitant]
  7. VITAMIN D [Concomitant]
     Active Substance: VITAMIN D NOS

REACTIONS (14)
  - Restlessness [None]
  - Sleep disorder [None]
  - Insomnia [None]
  - Dyspepsia [None]
  - Anxiety [None]
  - Major depression [None]
  - Anger [None]
  - Crying [None]
  - Skin burning sensation [None]
  - Derealisation [None]
  - Depersonalisation/derealisation disorder [None]
  - Fatigue [None]
  - Suicidal ideation [None]
  - Therapy non-responder [None]

NARRATIVE: CASE EVENT DATE: 20210908
